FAERS Safety Report 7412232-9 (Version None)
Quarter: 2011Q2

REPORT INFORMATION
  Report Type: 
  Country: None (occurrence: None)
  Receive Date: 20110413
  Receipt Date: 20110401
  Transmission Date: 20111010
  Serious: Yes (Other)
  Sender: FDA-Public Use
  Company Number: US-JNJFOC-20110402476

PATIENT
  Sex: Male
  Weight: 120.2 kg

DRUGS (15)
  1. LANTUS [Concomitant]
     Indication: DIABETES MELLITUS
     Route: 058
  2. REGULAR INSULIN [Concomitant]
     Indication: DIABETES MELLITUS
     Route: 065
  3. TRAMADOL [Concomitant]
     Indication: BREAKTHROUGH PAIN
     Route: 048
  4. ALTACE [Concomitant]
     Indication: HYPERTENSION
     Route: 048
  5. FUROSEMIDE [Concomitant]
     Indication: DIURETIC THERAPY
     Route: 048
  6. BACTRIM [Concomitant]
     Indication: INFECTION
     Route: 048
  7. HYDROCHLOROTHIAZIDE [Concomitant]
     Indication: DIURETIC THERAPY
     Route: 048
  8. ASPIRIN [Concomitant]
     Indication: PROPHYLAXIS
     Route: 048
  9. TEKTURNA [Concomitant]
     Indication: HYPERTENSION
     Route: 048
  10. TOPROL-XL [Concomitant]
     Indication: HYPERTENSION
     Route: 048
  11. IBUPROFEN [Concomitant]
     Indication: BREAKTHROUGH PAIN
     Route: 048
  12. FENTANYL-100 [Suspect]
     Route: 062
  13. FENTANYL-100 [Suspect]
     Indication: PAIN IN EXTREMITY
     Route: 062
  14. FENTANYL-100 [Suspect]
     Route: 062
  15. PLAVIX [Concomitant]
     Indication: CARDIAC DISORDER
     Route: 048

REACTIONS (7)
  - ANXIETY [None]
  - BLOOD GLUCOSE INCREASED [None]
  - WITHDRAWAL SYNDROME [None]
  - RESTLESS LEGS SYNDROME [None]
  - CONSTIPATION [None]
  - DRUG DOSE OMISSION [None]
  - DRUG INEFFECTIVE [None]
